FAERS Safety Report 25441854 (Version 1)
Quarter: 2025Q2

REPORT INFORMATION
  Report Type: Spontaneous
  Country: GB (occurrence: GB)
  Receive Date: 20250616
  Receipt Date: 20250616
  Transmission Date: 20250716
  Serious: Yes (Other)
  Sender: GALPHARM INTERNATIONAL
  Company Number: None

PATIENT
  Age: 61 Year
  Sex: Female
  Weight: 76 kg

DRUGS (5)
  1. NAPROXEN [Suspect]
     Active Substance: NAPROXEN
     Indication: Product used for unknown indication
     Route: 065
  2. CODEINE [Concomitant]
     Active Substance: CODEINE
     Indication: Product used for unknown indication
     Route: 065
     Dates: start: 20250228
  3. IBUPROFEN [Concomitant]
     Active Substance: IBUPROFEN
     Indication: Product used for unknown indication
     Route: 065
     Dates: start: 20250228
  4. PHORPAIN [Concomitant]
     Indication: Product used for unknown indication
     Route: 065
     Dates: start: 20250325
  5. COCODAMOL [Concomitant]
     Active Substance: ACETAMINOPHEN\CODEINE PHOSPHATE
     Indication: Product used for unknown indication
     Route: 065
     Dates: start: 20250407

REACTIONS (1)
  - Essential hypertension [Recovered/Resolved]
